FAERS Safety Report 17286829 (Version 2)
Quarter: 2020Q1

REPORT INFORMATION
  Report Type: Report from Study
  Country: US (occurrence: US)
  Receive Date: 20200119
  Receipt Date: 20200212
  Transmission Date: 20200409
  Serious: Yes (Hospitalization)
  Sender: FDA-Public Use
  Company Number: US-AGIOS-2001US01609

PATIENT

DRUGS (1)
  1. TIBSOVO [Suspect]
     Active Substance: IVOSIDENIB
     Indication: PANCYTOPENIA
     Dosage: 250 MILLIGRAM, 2 TABLETS (500MG), QD
     Route: 048
     Dates: start: 20191217

REACTIONS (4)
  - Transfusion [Unknown]
  - Off label use [Unknown]
  - Pain in extremity [Unknown]
  - Oedema peripheral [Unknown]

NARRATIVE: CASE EVENT DATE: 20191217
